FAERS Safety Report 9940726 (Version 1)
Quarter: 2014Q1

REPORT INFORMATION
  Report Type: Spontaneous
  Country: CA (occurrence: CA)
  Receive Date: 20140303
  Receipt Date: 20140303
  Transmission Date: 20141002
  Serious: Yes (Life-Threatening)
  Sender: FDA-Public Use
  Company Number: CA-B.I. PHARMACEUTICALS,INC./RIDGEFIELD-2014-BI-08836CN

PATIENT
  Age: 38 Year
  Sex: Male

DRUGS (7)
  1. SPIRIVA [Suspect]
     Indication: PRODUCT USED FOR UNKNOWN INDICATION
     Dosage: 18 MCG
     Route: 055
  2. APO-SALVENT CFC FREE [Concomitant]
     Route: 055
  3. ASAPHEN E.C. [Concomitant]
     Route: 048
  4. NOVO VENLAFAXINE XR [Concomitant]
     Route: 048
  5. NOVOLIN GE NPH INJ SUS [Concomitant]
     Dosage: 100 U/ML
     Route: 058
  6. NOVORAPID [Concomitant]
     Route: 058
  7. SYNTHROID [Concomitant]
     Route: 048

REACTIONS (1)
  - Blood glucose increased [Recovered/Resolved]
